FAERS Safety Report 23527392 (Version 4)
Quarter: 2025Q1

REPORT INFORMATION
  Report Type: Spontaneous
  Country: US (occurrence: US)
  Receive Date: 20240215
  Receipt Date: 20250103
  Transmission Date: 20250408
  Serious: No
  Sender: PFIZER
  Company Number: US-PFIZER INC-202101192478

PATIENT
  Age: 72 Year
  Sex: Female
  Weight: 89.796 kg

DRUGS (3)
  1. EUCRISA [Suspect]
     Active Substance: CRISABOROLE
     Indication: Psoriasis
     Dosage: APPLY TO AFFECTED AREAS (HEAD, TRUNK, BILATERAL UPPER AND LOWER EXTREMITIES) UNTIL RESOLVED.
  2. EUCRISA [Suspect]
     Active Substance: CRISABOROLE
     Indication: Eczema
     Dosage: UNK, 1X/DAY
  3. EUCRISA [Suspect]
     Active Substance: CRISABOROLE

REACTIONS (1)
  - Gastrooesophageal reflux disease [Unknown]
